FAERS Safety Report 13175612 (Version 1)
Quarter: 2017Q1

REPORT INFORMATION
  Report Type: Spontaneous
  Country: US (occurrence: US)
  Receive Date: 20170131
  Receipt Date: 20170131
  Transmission Date: 20170428
  Serious: Yes (Other)
  Sender: FDA-Public Use
  Company Number: None

PATIENT
  Age: 31 Year
  Sex: Female
  Weight: 60.7 kg

DRUGS (1)
  1. REMICADE [Suspect]
     Active Substance: INFLIXIMAB
     Indication: CROHN^S DISEASE
     Dosage: 3 VIALS; EVERY 2 MONTHS; INTRAVENOUS?
     Route: 042

REACTIONS (2)
  - Cervical dysplasia [None]
  - Smear cervix abnormal [None]

NARRATIVE: CASE EVENT DATE: 20161115
